FAERS Safety Report 19176181 (Version 1)
Quarter: 2021Q2

REPORT INFORMATION
  Report Type: Spontaneous
  Country: US (occurrence: US)
  Receive Date: 20210423
  Receipt Date: 20210423
  Transmission Date: 20210717
  Serious: No
  Sender: FDA-Public Use
  Company Number: 2020SGN03361

PATIENT
  Age: 60 Year
  Sex: Female

DRUGS (2)
  1. TUKYSA [Suspect]
     Active Substance: TUCATINIB
     Dosage: 150 MG, UNK
     Route: 048
  2. TUKYSA [Suspect]
     Active Substance: TUCATINIB
     Indication: BREAST CANCER FEMALE
     Dosage: UNK

REACTIONS (7)
  - Dizziness [Unknown]
  - Headache [Unknown]
  - Vomiting [Unknown]
  - Decreased appetite [Unknown]
  - Weight decreased [Unknown]
  - Hospice care [Unknown]
  - Nausea [Unknown]

NARRATIVE: CASE EVENT DATE: 20201210
